FAERS Safety Report 5444286-3 (Version None)
Quarter: 2007Q3

REPORT INFORMATION
  Report Type: 
  Country: None (occurrence: None)
  Receive Date: 20070904
  Receipt Date: 20070904
  Transmission Date: 20080115
  Serious: Yes (Hospitalization)
  Sender: FDA-Public Use
  Company Number: None

PATIENT
  Age: 79 Year
  Sex: Female
  Weight: 60.1 kg

DRUGS (1)
  1. METFORMIN HCL [Suspect]
     Indication: DIABETES MELLITUS
     Dosage: 1000 MG BID PO UNTIL ADMISSION
     Route: 048
     Dates: start: 20070812

REACTIONS (9)
  - DRUG TOXICITY [None]
  - HAEMODIALYSIS [None]
  - HYPOGLYCAEMIA [None]
  - HYPOTENSION [None]
  - LACTIC ACIDOSIS [None]
  - NAUSEA [None]
  - RENAL FAILURE ACUTE [None]
  - SHOCK [None]
  - VOMITING [None]
